FAERS Safety Report 11840554 (Version 1)
Quarter: 2015Q4

REPORT INFORMATION
  Report Type: Spontaneous
  Country: US (occurrence: None)
  Receive Date: 20151215
  Receipt Date: 20151215
  Transmission Date: 20160305
  Serious: No
  Sender: FDA-Public Use
  Company Number: None

PATIENT
  Age: 60 Year
  Sex: Male
  Weight: 65.77 kg

DRUGS (20)
  1. ACETAMINOPHEN. [Concomitant]
     Active Substance: ACETAMINOPHEN
  2. FOLIC ACID. [Concomitant]
     Active Substance: FOLIC ACID
  3. ACYCLOVIR. [Concomitant]
     Active Substance: ACYCLOVIR
  4. HYDROCODONE [Concomitant]
     Active Substance: HYDROCODONE
  5. TRAMADOL. [Concomitant]
     Active Substance: TRAMADOL
  6. MULTI VITAMIN [Concomitant]
     Active Substance: VITAMINS
  7. ALPRAZALAM [Concomitant]
  8. LANTIS INSULIN [Concomitant]
  9. LYRICA [Suspect]
     Active Substance: PREGABALIN
     Indication: NEURALGIA
     Route: 048
     Dates: start: 20151022, end: 20151026
  10. CINNAMON. [Concomitant]
     Active Substance: CINNAMON
  11. PREZISTA [Concomitant]
     Active Substance: DARUNAVIR ETHANOLATE
  12. EMTRIVA [Concomitant]
     Active Substance: EMTRICITABINE
  13. INTELENCE [Concomitant]
     Active Substance: ETRAVIRINE
  14. ISENTRESS [Concomitant]
     Active Substance: RALTEGRAVIR POTASSIUM
  15. JANUVIA XR [Concomitant]
  16. VITAMIN B COMPLEX [Concomitant]
     Active Substance: CYANOCOBALAMIN\DEXPANTHENOL\NIACINAMIDE\PYRIDOXINE HYDROCHLORIDE\RIBOFLAVIN 5^-PHOSPHATE SODIUM\THIAMINE HYDROCHLORIDE\VITAMIN B COMPLEX
  17. BABY ASPIRIN [Concomitant]
     Active Substance: ASPIRIN
  18. AMITRIPTYLINE [Concomitant]
     Active Substance: AMITRIPTYLINE
  19. GABAPENTIN. [Concomitant]
     Active Substance: GABAPENTIN
  20. NORVIR [Concomitant]
     Active Substance: RITONAVIR

REACTIONS (4)
  - Depressed mood [None]
  - Decreased interest [None]
  - Suicidal ideation [None]
  - Depression [None]

NARRATIVE: CASE EVENT DATE: 20151022
